FAERS Safety Report 6249642-1 (Version None)
Quarter: 2009Q2

REPORT INFORMATION
  Report Type: 
  Country: None (occurrence: None)
  Receive Date: 20090625
  Receipt Date: 20090625
  Transmission Date: 20091009
  Serious: Yes (Hospitalization)
  Sender: FDA-Public Use
  Company Number: None

PATIENT
  Age: 41 Year
  Sex: Male
  Weight: 97.5234 kg

DRUGS (1)
  1. CHANTIX [Suspect]
     Dosage: 11 X 0.5 MG TAB / 14X0.5 MG  11/14 PO
     Route: 048
     Dates: start: 20070721, end: 20070815

REACTIONS (4)
  - DEPRESSION [None]
  - HALLUCINATION [None]
  - INSOMNIA [None]
  - SUICIDAL IDEATION [None]
